FAERS Safety Report 8034550-6 (Version None)
Quarter: 2012Q1

REPORT INFORMATION
  Report Type: 
  Country: None (occurrence: None)
  Receive Date: 20120110
  Receipt Date: 20120106
  Transmission Date: 20120608
  Serious: No
  Sender: FDA-Public Use
  Company Number: US-B.I. PHARMACEUTICALS,INC./RIDGEFIELD-2011-BP-23079BP

PATIENT
  Age: 76 Year
  Sex: Female

DRUGS (19)
  1. HYDROCODONE BITARTRATE [Concomitant]
     Indication: NEUROPATHY PERIPHERAL
     Route: 048
  2. LEVOTHYROXINE SODIUM [Concomitant]
     Indication: HYPOTHYROIDISM
     Dosage: 50 MCG
     Route: 048
  3. FUROSEMIDE [Concomitant]
     Indication: FLUID RETENTION
     Dosage: 20 MG
     Route: 048
  4. COPTUS PURGE FIRE [Concomitant]
  5. GLYBURIDE [Concomitant]
     Indication: DIABETES MELLITUS
     Dosage: 20 MG
     Route: 048
  6. CALCIUM CARBONATE [Concomitant]
     Indication: SUPPLEMENTATION THERAPY
     Dosage: 45 MG
     Route: 048
  7. VITAMIN B-12 [Concomitant]
     Dosage: 2000 MCG
  8. LOVAZA [Concomitant]
     Dosage: 1000 MG
  9. COLLOIDAL SILVER [Concomitant]
  10. LISINOPRIL [Concomitant]
     Indication: HYPERTENSION
     Dosage: 10 MG
     Route: 048
  11. VITAMIN [Concomitant]
  12. ASPIRIN [Suspect]
     Indication: ATRIAL FIBRILLATION
     Dosage: 325 MG
     Route: 048
     Dates: start: 20090101, end: 20110901
  13. COQ10 [Concomitant]
     Indication: SUPPLEMENTATION THERAPY
     Route: 048
  14. POTASSIUM CHLORIDE [Concomitant]
     Indication: SUPPLEMENTATION THERAPY
     Dosage: 10 MEQ
     Route: 048
  15. VITAMIN E [Concomitant]
     Indication: SUPPLEMENTATION THERAPY
     Route: 048
  16. PRADAXA [Suspect]
     Indication: ATRIAL FIBRILLATION
     Dosage: 300 MG
     Route: 048
     Dates: start: 20110619, end: 20110901
  17. PRADAXA [Suspect]
     Indication: ANTICOAGULANT THERAPY
     Dosage: 300 MG
     Route: 048
     Dates: start: 20110904
  18. ACETAMINOPHEN [Concomitant]
     Indication: NEUROPATHY PERIPHERAL
     Route: 048
  19. BETHANECHOL (URECHOLINE) [Concomitant]
     Indication: LARYNGOSPASM
     Route: 048

REACTIONS (4)
  - EPISTAXIS [None]
  - DYSPEPSIA [None]
  - GROIN PAIN [None]
  - OCULAR HYPERAEMIA [None]
